FAERS Safety Report 21925655 (Version 1)
Quarter: 2023Q1

REPORT INFORMATION
  Report Type: Report from Study
  Country: US (occurrence: US)
  Receive Date: 20230130
  Receipt Date: 20230130
  Transmission Date: 20230417
  Serious: Yes (Hospitalization)
  Sender: FDA-Public Use
  Company Number: US-UCBSA-2023003812

PATIENT

DRUGS (3)
  1. KEPPRA [Suspect]
     Active Substance: LEVETIRACETAM
     Indication: Status epilepticus
     Dosage: 20 MILLIGRAM/KILOGRAM
  2. KEPPRA [Suspect]
     Active Substance: LEVETIRACETAM
     Dosage: 20-40 MILLIGRAM/KILOGRAM
  3. KEPPRA [Suspect]
     Active Substance: LEVETIRACETAM
     Dosage: GREATER THAN 40 MG/KG

REACTIONS (2)
  - Hospitalisation [Unknown]
  - Drug ineffective [Unknown]
